FAERS Safety Report 5771040-5 (Version None)
Quarter: 2008Q2

REPORT INFORMATION
  Report Type: 
  Country: None (occurrence: None)
  Receive Date: 20080613
  Receipt Date: 20080527
  Transmission Date: 20081010
  Serious: No
  Sender: FDA-Public Use
  Company Number: US-ABBOTT-08P-163-0453572-00

PATIENT
  Sex: Male
  Weight: 73.548 kg

DRUGS (3)
  1. HUMIRA [Suspect]
     Indication: COLITIS ULCERATIVE
     Dates: start: 20080514
  2. HUMIRA [Suspect]
     Dates: start: 20080528
  3. HUMIRA [Suspect]

REACTIONS (5)
  - ABDOMINAL PAIN [None]
  - DIARRHOEA [None]
  - DIZZINESS [None]
  - VOMITING [None]
  - WEIGHT DECREASED [None]
